FAERS Safety Report 6918150-4 (Version None)
Quarter: 2010Q3

REPORT INFORMATION
  Report Type: 
  Country: None (occurrence: None)
  Receive Date: 20100806
  Receipt Date: 20100723
  Transmission Date: 20110219
  Serious: Yes (Other)
  Sender: FDA-Public Use
  Company Number: IPC201007-000223

PATIENT
  Age: 61 Year
  Sex: Male

DRUGS (7)
  1. METFORMIN HCL [Suspect]
     Indication: TYPE 2 DIABETES MELLITUS
     Dosage: 500 MG TWICE A DAY, ORAL
     Route: 048
  2. SIMVASTATIN [Suspect]
     Dosage: 10 MG, 1 IN 1 D
  3. NIASPAN [Suspect]
     Dosage: 500 MG, 1 IN 1 D
  4. METOCLOPRAMIDE HYDROCHLORIDE (METOCLOPRAMIDE HYDROCHLORIDE) (METOCLOPR [Concomitant]
  5. HYDROCHLOROTHIAZIDE [Concomitant]
  6. GLYBURIDE [Concomitant]
  7. LISINOPRIL [Concomitant]

REACTIONS (11)
  - ALANINE AMINOTRANSFERASE INCREASED [None]
  - ASPARTATE AMINOTRANSFERASE INCREASED [None]
  - BLOOD ALKALINE PHOSPHATASE INCREASED [None]
  - FATIGUE [None]
  - GAMMA-GLUTAMYLTRANSFERASE INCREASED [None]
  - GLYCOSYLATED HAEMOGLOBIN INCREASED [None]
  - HEPATOTOXICITY [None]
  - JAUNDICE [None]
  - NAUSEA [None]
  - REFUSAL OF TREATMENT BY PATIENT [None]
  - WEIGHT DECREASED [None]
